FAERS Safety Report 4740310-1 (Version None)
Quarter: 2005Q3

REPORT INFORMATION
  Report Type: 
  Country: None (occurrence: None)
  Receive Date: 20050805
  Receipt Date: 20050722
  Transmission Date: 20060218
  Serious: Yes (Hospitalization)
  Sender: FDA-Public Use
  Company Number: GXKR2005DE01394

PATIENT
  Age: 73 Year
  Sex: Male

DRUGS (4)
  1. ALLOPURINOL [Suspect]
     Indication: HYPERURICAEMIA
     Dosage: FIRST 150 MG DAILY, ORAL
     Route: 048
     Dates: start: 20050420, end: 20050612
  2. ATACAND PLUS (CANDESARTAN CILEXETIL, HYDROCHLOROIAZIDE) [Concomitant]
  3. CALCITRIOL [Concomitant]
  4. MULTIPLE VITAMINS (ASCORBIC ACID, ERGOCALCIFEROL, FOLIC ACID, RETINOL, [Concomitant]

REACTIONS (4)
  - OEDEMA PERIPHERAL [None]
  - PHOTOSENSITIVITY REACTION [None]
  - SUNBURN [None]
  - SWELLING FACE [None]
